FAERS Safety Report 20541245 (Version 1)
Quarter: 2022Q1

REPORT INFORMATION
  Report Type: Spontaneous
  Country: US (occurrence: None)
  Receive Date: 20220302
  Receipt Date: 20220302
  Transmission Date: 20220423
  Serious: No
  Sender: FDA-Public Use
  Company Number: None

PATIENT

DRUGS (1)
  1. BUPROPION HYDROCHLORIDE [Suspect]
     Active Substance: BUPROPION HYDROCHLORIDE
     Indication: Depression
     Dosage: OTHER QUANTITY : 30;?FREQUENCY : DAILY;?
     Route: 048

REACTIONS (4)
  - Constipation [None]
  - Constipation [None]
  - Gastrointestinal pain [None]
  - Faecaloma [None]
